FAERS Safety Report 15274352 (Version 1)
Quarter: 2018Q3

REPORT INFORMATION
  Report Type: Report from Study
  Country: DK (occurrence: DK)
  Receive Date: 20180814
  Receipt Date: 20180814
  Transmission Date: 20181010
  Serious: Yes (Other)
  Sender: FDA-Public Use
  Company Number: DK-ROCHE-2163049

PATIENT
  Age: 65 Year
  Sex: Male
  Weight: 106 kg

DRUGS (8)
  1. ALLOPURINOL. [Concomitant]
     Active Substance: ALLOPURINOL
     Route: 065
  2. SPIOLTO RESPIMAT [Concomitant]
     Active Substance: OLODATEROL HYDROCHLORIDE\TIOTROPIUM BROMIDE MONOHYDRATE
     Route: 065
     Dates: start: 20170323
  3. RITUXIMAB. [Suspect]
     Active Substance: RITUXIMAB
     Indication: CHRONIC LYMPHOCYTIC LEUKAEMIA
     Dosage: CYCLE 1: 375 MG/M2, DAY 0 CYCLES 2?6: 500 MG/M2, D1; Q28D?LAST DAILY DOSE OF RITUXIMAB 1060MG
     Route: 042
     Dates: start: 20171108, end: 20180416
  4. CHAMPIX [Concomitant]
     Active Substance: VARENICLINE TARTRATE
     Route: 048
     Dates: start: 20180223
  5. VENTOLINE [Concomitant]
     Active Substance: ALBUTEROL
     Route: 065
     Dates: start: 20140109
  6. CYCLOPHOSPHAMIDE. [Suspect]
     Active Substance: CYCLOPHOSPHAMIDE
     Indication: CHRONIC LYMPHOCYTIC LEUKAEMIA
     Dosage: LAST DAILY DOSE 271 MG
     Route: 042
     Dates: start: 20171108, end: 20180418
  7. SULFOTRIM [Concomitant]
     Route: 048
     Dates: start: 20180518
  8. FLUDARABINE PHOSPHATE. [Suspect]
     Active Substance: FLUDARABINE PHOSPHATE
     Indication: CHRONIC LYMPHOCYTIC LEUKAEMIA
     Dosage: CYCLES 1?6: 90MG/M2, D1?2, Q28D?LAST DAILY DOSE 27 MG
     Route: 042
     Dates: start: 20171108, end: 20180418

REACTIONS (1)
  - Large intestine perforation [Recovered/Resolved]

NARRATIVE: CASE EVENT DATE: 20180516
